FAERS Safety Report 9887329 (Version 1)
Quarter: 2014Q1

REPORT INFORMATION
  Report Type: Report from Study
  Country: FR (occurrence: FR)
  Receive Date: 20140211
  Receipt Date: 20140211
  Transmission Date: 20141002
  Serious: Yes (Hospitalization)
  Sender: FDA-Public Use
  Company Number: FR-ROCHE-1342774

PATIENT
  Age: 60 Year
  Sex: Female

DRUGS (13)
  1. RITUXIMAB [Suspect]
     Indication: RHEUMATOID ARTHRITIS
     Route: 065
  2. CORTANCYL [Concomitant]
     Route: 065
     Dates: start: 20071127
  3. CORTANCYL [Concomitant]
     Route: 065
     Dates: start: 20071211
  4. CORTANCYL [Concomitant]
     Route: 065
     Dates: start: 20090331
  5. CORTANCYL [Concomitant]
     Route: 065
     Dates: start: 20110208
  6. CORTANCYL [Concomitant]
     Route: 065
     Dates: start: 20111121
  7. CORTANCYL [Concomitant]
     Route: 065
     Dates: start: 20121023
  8. METHOTREXATE [Concomitant]
     Route: 065
     Dates: start: 20071127
  9. METHOTREXATE [Concomitant]
     Route: 065
     Dates: start: 20071211
  10. METHOTREXATE [Concomitant]
     Route: 065
     Dates: start: 20090331
  11. METHOTREXATE [Concomitant]
     Route: 065
     Dates: start: 20110208
  12. METHOTREXATE [Concomitant]
     Route: 065
     Dates: start: 20111121
  13. METHOTREXATE [Concomitant]
     Route: 065
     Dates: start: 20121023

REACTIONS (12)
  - Depression [Unknown]
  - Herpes zoster [Recovered/Resolved]
  - Rhinitis allergic [Recovered/Resolved]
  - Musculoskeletal chest pain [Recovered/Resolved]
  - Borrelia infection [Recovered/Resolved]
  - Pyrexia [Recovered/Resolved]
  - Fatigue [Recovered/Resolved]
  - Myalgia [Recovered/Resolved]
  - Night sweats [Recovered/Resolved]
  - Depression [Unknown]
  - Renal cyst [Unknown]
  - Hamartoma [Unknown]
